FAERS Safety Report 17878265 (Version 2)
Quarter: 2020Q3

REPORT INFORMATION
  Report Type: Spontaneous
  Country: US (occurrence: US)
  Receive Date: 20200609
  Receipt Date: 20200717
  Transmission Date: 20201103
  Serious: Yes (Death, Other)
  Sender: FDA-Public Use
  Company Number: US-GILEAD-2020-0470883

PATIENT
  Age: 70 Year
  Sex: Male
  Weight: 95.5 kg

DRUGS (18)
  1. APIXABAN [Concomitant]
     Active Substance: APIXABAN
  2. ASPIRIN [ACETYLSALICYLIC ACID] [Concomitant]
     Active Substance: ASPIRIN
  3. INSULIN LISPRO [Concomitant]
     Active Substance: INSULIN LISPRO
  4. SEVELAMER [Concomitant]
     Active Substance: SEVELAMER
  5. SODIUM POLYSTYRENE SULFONATE. [Concomitant]
     Active Substance: SODIUM POLYSTYRENE SULFONATE
  6. HYDROXYCHLOROQUINE ACTAVIS [Concomitant]
     Active Substance: HYDROXYCHLOROQUINE SULFATE
  7. GABAPENTIN. [Concomitant]
     Active Substance: GABAPENTIN
  8. ACETAMINOPHEN. [Concomitant]
     Active Substance: ACETAMINOPHEN
  9. METOPROLOL. [Concomitant]
     Active Substance: METOPROLOL
  10. PLASMA [Concomitant]
     Active Substance: HUMAN PLASMA
  11. ELIQUIS [Concomitant]
     Active Substance: APIXABAN
  12. OXYGEN. [Concomitant]
     Active Substance: OXYGEN
  13. AMLODIPINE [Concomitant]
     Active Substance: AMLODIPINE BESYLATE
  14. FUROSEMIDE. [Concomitant]
     Active Substance: FUROSEMIDE
  15. INSULIN GLARGINE [Concomitant]
     Active Substance: INSULIN GLARGINE
  16. REMDESIVIR. [Suspect]
     Active Substance: REMDESIVIR
     Indication: COVID-19
     Dosage: 100 MG, QD
     Route: 042
     Dates: start: 20200512, end: 20200516
  17. ISOSORBIDE MONONITRATE. [Concomitant]
     Active Substance: ISOSORBIDE MONONITRATE
  18. ROSUVASTATIN. [Concomitant]
     Active Substance: ROSUVASTATIN

REACTIONS (3)
  - Respiratory failure [Fatal]
  - COVID-19 pneumonia [Fatal]
  - Acute kidney injury [Not Recovered/Not Resolved]

NARRATIVE: CASE EVENT DATE: 20200514
